FAERS Safety Report 7930109-7 (Version None)
Quarter: 2011Q4

REPORT INFORMATION
  Report Type: 
  Country: None (occurrence: None)
  Receive Date: 20111121
  Receipt Date: 20111111
  Transmission Date: 20120403
  Serious: Yes (Other)
  Sender: FDA-Public Use
  Company Number: US-GENZYME-MOZO-1000596

PATIENT
  Age: 32 Year
  Sex: Male

DRUGS (7)
  1. MELPHALAN HYDROCHLORIDE [Concomitant]
     Indication: CHEMOTHERAPY
     Dosage: UNK
     Dates: start: 20110827, end: 20110828
  2. CYCLOPHOSPHAMIDE [Concomitant]
     Indication: HAEMATOPOIETIC STEM CELL MOBILISATION
     Dosage: UNK
     Route: 042
     Dates: start: 20110729
  3. NEUPOGEN [Concomitant]
     Indication: HAEMATOPOIETIC STEM CELL MOBILISATION
     Dosage: UNK
     Route: 058
     Dates: start: 20110101, end: 20110101
  4. CYCLOPHOSPHAMIDE [Concomitant]
     Indication: MULTIPLE MYELOMA
  5. NEUPOGEN [Concomitant]
     Indication: MULTIPLE MYELOMA
  6. MOZOBIL [Suspect]
     Indication: HAEMATOPOIETIC STEM CELL MOBILISATION
     Dosage: UNK
     Route: 042
     Dates: start: 20110101, end: 20110101
  7. MOZOBIL [Suspect]
     Indication: MULTIPLE MYELOMA

REACTIONS (5)
  - VOMITING [None]
  - INAPPROPRIATE ANTIDIURETIC HORMONE SECRETION [None]
  - NAUSEA [None]
  - HYPONATRAEMIA [None]
  - SYNCOPE [None]
